FAERS Safety Report 19460785 (Version 1)
Quarter: 2021Q2

REPORT INFORMATION
  Report Type: Spontaneous
  Country: CA (occurrence: CA)
  Receive Date: 20210625
  Receipt Date: 20210625
  Transmission Date: 20210717
  Serious: Yes (Hospitalization)
  Sender: FDA-Public Use
  Company Number: CA-TEVA-2021-CA-1924898

PATIENT
  Age: 64 Year
  Sex: Female

DRUGS (6)
  1. TAXOL [Suspect]
     Active Substance: PACLITAXEL
     Route: 065
  2. DOXORUBICIN HYDROCHLORIDE INJECTION [Suspect]
     Active Substance: DOXORUBICIN HYDROCHLORIDE
     Route: 042
  3. CALCIUM [Concomitant]
     Active Substance: CALCIUM
  4. CALCITRIOL. [Concomitant]
     Active Substance: CALCITRIOL
  5. EDOXABAN TOSILATO (9165RU) [Concomitant]
     Active Substance: EDOXABAN TOSYLATE
  6. LEVOTHYROXINE. [Concomitant]
     Active Substance: LEVOTHYROXINE

REACTIONS (1)
  - Anaemia [Unknown]
